FAERS Safety Report 5425353-7 (Version None)
Quarter: 2007Q3

REPORT INFORMATION
  Report Type: 
  Country: None (occurrence: None)
  Receive Date: 20070824
  Receipt Date: 20070806
  Transmission Date: 20080115
  Serious: Yes (Hospitalization)
  Sender: FDA-Public Use
  Company Number: GB-SHR-GB-2007-026017

PATIENT
  Age: 51 Year
  Sex: Male
  Weight: 70.748 kg

DRUGS (3)
  1. FLUDARA [Suspect]
     Dosage: 40 UNK, UNK
  2. FLUDARA [Suspect]
     Dates: start: 20070710, end: 20070712
  3. CYCLOPHOSPHAMIDE [Suspect]

REACTIONS (2)
  - PETIT MAL EPILEPSY [None]
  - ROAD TRAFFIC ACCIDENT [None]
